FAERS Safety Report 7534818-3 (Version None)
Quarter: 2011Q2

REPORT INFORMATION
  Report Type: 
  Country: None (occurrence: None)
  Receive Date: 20110609
  Receipt Date: 20080922
  Transmission Date: 20111010
  Serious: Yes (Other)
  Sender: FDA-Public Use
  Company Number: PHHY2008AU05405

PATIENT
  Sex: Male

DRUGS (6)
  1. KEPPRA [Concomitant]
     Dosage: 500 MG, BID
  2. FOSSAMANE [Concomitant]
     Dosage: UNK
  3. VALPROATE SODIUM [Concomitant]
     Dosage: 500 MG, QD
  4. CLOZAPINE [Suspect]
     Indication: SCHIZOPHRENIA
     Dosage: 600 MG, UNK
     Dates: start: 20010921
  5. CITALOPRAM HYDROBROMIDE [Concomitant]
     Dosage: 20 MG, QD
  6. VALPROATE SODIUM [Concomitant]
     Dosage: 1000 MG, UNK

REACTIONS (1)
  - SQUAMOUS CELL CARCINOMA [None]
